FAERS Safety Report 18158046 (Version 1)
Quarter: 2020Q3

REPORT INFORMATION
  Report Type: Spontaneous
  Country: US (occurrence: US)
  Receive Date: 20200817
  Receipt Date: 20200817
  Transmission Date: 20201103
  Serious: No
  Sender: FDA-Public Use
  Company Number: US-MEDEXUS PHARMA, INC.-2020MED00124

PATIENT
  Sex: Female

DRUGS (5)
  1. RASUVO [Suspect]
     Active Substance: METHOTREXATE SODIUM
     Dosage: UNK
  2. UNSPECIFIED SEDATIVE MEDICATION [Suspect]
     Active Substance: UNSPECIFIED INGREDIENT
  3. ENBREL [Suspect]
     Active Substance: ETANERCEPT
  4. UNSPECIFIED SHOT [Suspect]
     Active Substance: UNSPECIFIED INGREDIENT
  5. MULTITUDE OF MEDICATIONS [Concomitant]

REACTIONS (3)
  - Ear infection [Recovered/Resolved]
  - Fatigue [Not Recovered/Not Resolved]
  - Eye infection [Recovered/Resolved]
